FAERS Safety Report 23150694 (Version 2)
Quarter: 2024Q1

REPORT INFORMATION
  Report Type: Spontaneous
  Country: DE (occurrence: DE)
  Receive Date: 20231106
  Receipt Date: 20240206
  Transmission Date: 20240409
  Serious: Yes (Other)
  Sender: FDA-Public Use
  Company Number: None

PATIENT
  Age: 57 Year
  Sex: Female

DRUGS (6)
  1. BORTEZOMIB [Suspect]
     Active Substance: BORTEZOMIB
     Indication: Plasma cell myeloma
     Dosage: DOSE : UNAV.; FREQ : UNAV.UNK
     Route: 065
     Dates: start: 201512, end: 201612
  2. DEXAMETHASONE [Suspect]
     Active Substance: DEXAMETHASONE
     Dosage: DOSE : UNAV.; FREQ : UNAV.UNK
     Route: 065
     Dates: start: 201512, end: 201612
  3. DEXAMETHASONE [Suspect]
     Active Substance: DEXAMETHASONE
     Indication: Plasma cell myeloma
     Dosage: UNK (DOSE : UNAV.; FREQ: UNAV)
     Route: 065
     Dates: start: 201404
  4. PANOBINOSTAT [Suspect]
     Active Substance: PANOBINOSTAT
     Indication: Plasma cell myeloma
     Dosage: DOSE : UNAV.; FREQ : UNAV.UNK
     Route: 065
     Dates: start: 201512, end: 201612
  5. REVLIMID [Suspect]
     Active Substance: LENALIDOMIDE
     Dosage: DOSE : UNAV.; FREQ : UNAV.UNK
     Route: 065
     Dates: start: 201512, end: 201612
  6. REVLIMID [Suspect]
     Active Substance: LENALIDOMIDE
     Indication: Plasma cell myeloma
     Dosage: UNK (DOSE : UNAV.; FREQ: UNAV)
     Route: 065
     Dates: start: 201404

REACTIONS (1)
  - Plasma cell myeloma [Unknown]
